FAERS Safety Report 5307129-4 (Version None)
Quarter: 2007Q1

REPORT INFORMATION
  Report Type: 
  Country: None (occurrence: None)
  Receive Date: 20070206
  Receipt Date: 20070206
  Transmission Date: 20070707
  Serious: No
  Sender: FDA-Public Use
  Company Number: None

PATIENT
  Age: 47 Year
  Sex: Male
  Weight: 99.7913 kg

DRUGS (1)
  1. LISTERINE WHITENING      PFIZER [Suspect]
     Dosage: 1/2 OZ  (DURATION: TWICE, OVER TWO DAYS)

REACTIONS (2)
  - CAUSTIC INJURY [None]
  - TONGUE DISORDER [None]
